FAERS Safety Report 9858445 (Version 4)
Quarter: 2014Q1

REPORT INFORMATION
  Report Type: Spontaneous
  Country: FR (occurrence: None)
  Receive Date: 20140129
  Receipt Date: 20140327
  Transmission Date: 20141002
  Serious: Yes (Other)
  Sender: FDA-Public Use
  Company Number: 2013-FR-005208

PATIENT
  Age: 30 Year
  Sex: Female

DRUGS (2)
  1. XYREM [Suspect]
     Indication: HYPERSOMNIA
     Route: 048
     Dates: start: 20131218, end: 20140101
  2. LAMICTAL (LAMOTRIGINE) [Concomitant]

REACTIONS (16)
  - Terminal state [None]
  - Asphyxia [None]
  - Inappropriate affect [None]
  - Crying [None]
  - Dyspnoea [None]
  - Sleep paralysis [None]
  - Dysstasia [None]
  - Inappropriate affect [None]
  - Convulsion [None]
  - Speech disorder [None]
  - Vertigo [None]
  - Gastroenteritis [None]
  - Anxiety [None]
  - Inappropriate schedule of drug administration [None]
  - Off label use [None]
  - Respiratory disorder [None]
